FAERS Safety Report 7320792-1 (Version None)
Quarter: 2011Q1

REPORT INFORMATION
  Report Type: 
  Country: None (occurrence: None)
  Receive Date: 20110228
  Receipt Date: 20100414
  Transmission Date: 20110831
  Serious: No
  Sender: FDA-Public Use
  Company Number: A0845722A

PATIENT
  Age: 75 Year
  Sex: Female

DRUGS (2)
  1. LAMICTAL [Suspect]
     Dosage: 100MG TWICE PER DAY
     Route: 048
     Dates: start: 20050101
  2. VITAMIN B-12 [Concomitant]
     Route: 065

REACTIONS (3)
  - HEADACHE [None]
  - PRODUCT QUALITY ISSUE [None]
  - EAR PAIN [None]
